FAERS Safety Report 11924179 (Version 4)
Quarter: 2016Q3

REPORT INFORMATION
  Report Type: Spontaneous
  Country: US (occurrence: US)
  Receive Date: 20160118
  Receipt Date: 20160707
  Transmission Date: 20161109
  Serious: Yes (Hospitalization)
  Sender: FDA-Public Use
  Company Number: US-PFIZER INC-2015447611

PATIENT
  Age: 63 Year
  Sex: Male

DRUGS (5)
  1. TIKOSYN [Suspect]
     Active Substance: DOFETILIDE
     Dosage: 0.125 MG, UNK
  2. TIKOSYN [Suspect]
     Active Substance: DOFETILIDE
     Dosage: 0.375 MG, 2X/DAY
     Dates: start: 201512
  3. VIAGRA [Concomitant]
     Active Substance: SILDENAFIL CITRATE
     Indication: ERECTILE DYSFUNCTION
     Dosage: 100 MG, UNK
     Dates: start: 2014
  4. TIKOSYN [Suspect]
     Active Substance: DOFETILIDE
     Indication: ATRIAL FIBRILLATION
     Dosage: 0.250 MG, UNK
  5. VIAGRA [Concomitant]
     Active Substance: SILDENAFIL CITRATE
     Dosage: ALTERNATE DAY (ONCE EVERY OTHER DAY)
     Dates: start: 2014

REACTIONS (2)
  - Drug dispensing error [Unknown]
  - Atrial fibrillation [Recovered/Resolved]
